FAERS Safety Report 5128726-5 (Version None)
Quarter: 2006Q4

REPORT INFORMATION
  Report Type: 
  Country: None (occurrence: None)
  Receive Date: 20061011
  Receipt Date: 20061002
  Transmission Date: 20070319
  Serious: Yes (Other)
  Sender: FDA-Public Use
  Company Number: 2006106807

PATIENT
  Age: 10 Year
  Sex: Male
  Weight: 35.8342 kg

DRUGS (4)
  1. GEODON [Suspect]
     Indication: BIPOLAR DISORDER
     Dosage: 160 MG (1 IN 1 D), ORAL
     Route: 048
     Dates: start: 20050902, end: 20060224
  2. ADDERALL XR (AMFETAMINE ASPARTATE, AMFETAMINE SULFATE, DEXAMFETAMINE S [Concomitant]
  3. CLONIDINE [Concomitant]
  4. COGENTIN [Concomitant]

REACTIONS (1)
  - TARDIVE DYSKINESIA [None]
